FAERS Safety Report 5576330-7 (Version None)
Quarter: 2007Q4

REPORT INFORMATION
  Report Type: 
  Country: None (occurrence: None)
  Receive Date: 20071228
  Receipt Date: 20071217
  Transmission Date: 20080405
  Serious: Yes (Hospitalization)
  Sender: FDA-Public Use
  Company Number: FR-ROCHE-537849

PATIENT
  Age: 84 Year
  Sex: Female

DRUGS (9)
  1. VALIUM [Suspect]
     Dosage: DECREASED.
     Route: 048
     Dates: start: 20070330, end: 20070413
  2. VALIUM [Suspect]
     Dosage: DECREASED.
     Route: 048
     Dates: start: 20070413, end: 20070421
  3. VALIUM [Suspect]
     Dosage: DECREASED.
     Route: 048
     Dates: start: 20070422, end: 20070504
  4. VALIUM [Suspect]
     Route: 048
     Dates: start: 20070505, end: 20070506
  5. STABLON [Suspect]
     Indication: DRUG USE FOR UNKNOWN INDICATION
     Route: 048
     Dates: start: 20070330, end: 20070506
  6. GINKOR [Concomitant]
     Route: 048
  7. INIPOMP [Concomitant]
     Route: 048
  8. RENITEC [Concomitant]
  9. RISPERDAL [Concomitant]

REACTIONS (1)
  - FINE MOTOR DELAY [None]
